FAERS Safety Report 4337673-8 (Version None)
Quarter: 2004Q2

REPORT INFORMATION
  Report Type: 
  Country: None (occurrence: None)
  Receive Date: 20040409
  Receipt Date: 20040330
  Transmission Date: 20050107
  Serious: Yes (Other)
  Sender: FDA-Public Use
  Company Number: PHEH2004US03626

PATIENT
  Age: 47 Year
  Sex: Male
  Weight: 83 kg

DRUGS (9)
  1. LAMISIL AT [Suspect]
     Indication: NAIL TINEA
     Dosage: BIW, TOPICAL
     Route: 061
     Dates: start: 19990101
  2. VIOXX [Suspect]
     Indication: PAIN
     Dosage: ORAL
     Route: 048
  3. THIAMINE [Concomitant]
  4. FIBERCON (POLYCARBOPHIL CALCIUM) [Concomitant]
  5. MULTIVITAMIN [Concomitant]
  6. LACTULOSE [Concomitant]
  7. LASIX [Concomitant]
  8. SPIRONOLACTONE [Concomitant]
  9. PROPRANOLOL [Concomitant]

REACTIONS (3)
  - HEPATIC CIRRHOSIS [None]
  - HEPATOCELLULAR DAMAGE [None]
  - PSORIASIS [None]
